FAERS Safety Report 7332534-4 (Version None)
Quarter: 2011Q1

REPORT INFORMATION
  Report Type: 
  Country: None (occurrence: None)
  Receive Date: 20110304
  Receipt Date: 20110228
  Transmission Date: 20110831
  Serious: Yes (Death, Life-Threatening, Hospitalization)
  Sender: FDA-Public Use
  Company Number: DE-ASTRAZENECA-2011SE11173

PATIENT
  Age: 83 Year
  Sex: Female

DRUGS (5)
  1. TOREM [Concomitant]
     Route: 048
     Dates: end: 20100112
  2. SEROQUEL [Suspect]
     Route: 048
     Dates: start: 20100109
  3. SEROQUEL [Suspect]
     Route: 048
     Dates: end: 20100108
  4. DOMINAL [Suspect]
     Route: 048
     Dates: start: 20100107
  5. OXYGESIC [Concomitant]
     Route: 048
     Dates: end: 20100112

REACTIONS (6)
  - AGGRESSION [None]
  - CIRCULATORY COLLAPSE [None]
  - DEATH [None]
  - VOMITING [None]
  - DYSPNOEA [None]
  - NAUSEA [None]
